FAERS Safety Report 19548540 (Version 1)
Quarter: 2021Q3

REPORT INFORMATION
  Report Type: Spontaneous
  Country: AU (occurrence: AU)
  Receive Date: 20210715
  Receipt Date: 20210715
  Transmission Date: 20211014
  Serious: Yes (Disabling)
  Sender: FDA-Public Use
  Company Number: None

PATIENT
  Age: 35 Year
  Sex: Female
  Weight: 53 kg

DRUGS (2)
  1. APO?CIPROFLOXACIN [Suspect]
     Active Substance: CIPROFLOXACIN HYDROCHLORIDE
     Indication: SKIN INFECTION
     Dosage: ?          QUANTITY:1 TABLET(S);?
     Route: 048
     Dates: start: 20191207, end: 20191228
  2. THYROXINE HORMONE PILL [Concomitant]

REACTIONS (8)
  - Arthralgia [None]
  - Tremor [None]
  - Meniscus injury [None]
  - Pain in extremity [None]
  - Arthritis [None]
  - Pain [None]
  - Muscle twitching [None]
  - Back pain [None]

NARRATIVE: CASE EVENT DATE: 20200119
